FAERS Safety Report 5114574-9 (Version None)
Quarter: 2006Q3

REPORT INFORMATION
  Report Type: 
  Country: None (occurrence: None)
  Receive Date: 20060926
  Receipt Date: 20060921
  Transmission Date: 20061208
  Serious: Yes (Life-Threatening, Hospitalization)
  Sender: FDA-Public Use
  Company Number: PHBS2006JP14574

PATIENT
  Age: 33 Year
  Sex: Male
  Weight: 60.6 kg

DRUGS (10)
  1. LUDIOMIL [Suspect]
     Dosage: EMPTY 87 TABLETS OF 25 MG
     Route: 048
  2. AMITRIPTYLINE HCL [Suspect]
     Dosage: 25 MG/DAY
     Route: 048
     Dates: start: 20060626
  3. AMITRIPTYLINE HCL [Suspect]
     Dosage: EMPTY 56 TABLETS OF 25 MG
     Route: 048
  4. AMOXAN [Concomitant]
     Dosage: 25 MG/DAY
     Route: 048
     Dates: start: 20060626
  5. AMOXAN [Concomitant]
     Dosage: EMPTY 10 TABLETS OF 25 MG
     Route: 048
  6. DEPAS [Concomitant]
     Dosage: EMPTY 160 TABLETS OF 0.5 MG
     Route: 048
  7. SERENAMIN [Concomitant]
     Dosage: EMPTY 10 TABLETS
     Route: 048
  8. BROMAZEPAM [Concomitant]
     Route: 048
     Dates: start: 20060626
  9. DEPAKENE [Concomitant]
     Dosage: 200 MG/DAY
     Route: 048
     Dates: start: 20060626
  10. LIMAS [Concomitant]
     Route: 048
     Dates: start: 20060626

REACTIONS (31)
  - ACUTE RESPIRATORY DISTRESS SYNDROME [None]
  - AGGRESSION [None]
  - ASPIRATION [None]
  - BLOOD CREATINE PHOSPHOKINASE INCREASED [None]
  - BLOOD PRESSURE DECREASED [None]
  - BODY TEMPERATURE INCREASED [None]
  - C-REACTIVE PROTEIN INCREASED [None]
  - CARDIOMYOPATHY [None]
  - DELIRIUM [None]
  - DEPRESSED LEVEL OF CONSCIOUSNESS [None]
  - DRUG TOXICITY [None]
  - DYSPNOEA [None]
  - ELECTROCARDIOGRAM QRS COMPLEX PROLONGED [None]
  - ELECTROCARDIOGRAM QT PROLONGED [None]
  - FOAMING AT MOUTH [None]
  - HEPATIC ENZYME INCREASED [None]
  - HEPATOMEGALY [None]
  - INTERSTITIAL LUNG DISEASE [None]
  - IRRITABILITY [None]
  - LUNG INFILTRATION [None]
  - MALAISE [None]
  - OVERDOSE [None]
  - OXYGEN SATURATION DECREASED [None]
  - PNEUMONIA MYCOPLASMAL [None]
  - PNEUMONIA PNEUMOCOCCAL [None]
  - PULMONARY OEDEMA [None]
  - RESPIRATORY FAILURE [None]
  - SEPTIC SHOCK [None]
  - STUPOR [None]
  - VENTRICULAR HYPOKINESIA [None]
  - WHITE BLOOD CELL COUNT INCREASED [None]
